FAERS Safety Report 4426330-5 (Version None)
Quarter: 2004Q3

REPORT INFORMATION
  Report Type: 
  Country: None (occurrence: None)
  Receive Date: 20040811
  Receipt Date: 20040802
  Transmission Date: 20050211
  Serious: Yes (Other)
  Sender: FDA-Public Use
  Company Number: 2004-BP-06517RO

PATIENT
  Age: 57 Year
  Sex: Female

DRUGS (1)
  1. METHOTREXATE [Suspect]
     Indication: RHEUMATOID ARTHRITIS
     Dosage: 7.5 - 10 MG/WEEK (NR, 1 IN 1 WK)

REACTIONS (3)
  - HEPATITIS FULMINANT [None]
  - INTERSTITIAL LUNG DISEASE [None]
  - LIVER TRANSPLANT [None]
